FAERS Safety Report 8557189 (Version 3)
Quarter: 2014Q3

REPORT INFORMATION
  Report Type: Spontaneous
  Country: US (occurrence: US)
  Receive Date: 20120511
  Receipt Date: 20140805
  Transmission Date: 20150326
  Serious: Yes (Life-Threatening, Hospitalization)
  Sender: FDA-Public Use
  Company Number: US-BAYER-2012-045931

PATIENT
  Age: 34 Year
  Sex: Female
  Weight: 99.77 kg

DRUGS (4)
  1. YAZ [Suspect]
     Active Substance: DROSPIRENONE\ETHINYL ESTRADIOL
  2. OCELLA [Suspect]
     Active Substance: DROSPIRENONE\ETHINYL ESTRADIOL
  3. LIPITOR [Concomitant]
     Active Substance: ATORVASTATIN CALCIUM
     Route: 048
  4. METFORMIN [Concomitant]
     Active Substance: METFORMIN HYDROCHLORIDE
     Indication: POLYCYSTIC OVARIES
     Dosage: UNK
     Dates: start: 2008

REACTIONS (11)
  - Pulmonary embolism [None]
  - Emotional distress [None]
  - Injury [None]
  - Anxiety [None]
  - Fear [None]
  - Pain [None]
  - Anhedonia [None]
  - Quality of life decreased [None]
  - Discomfort [Recovered/Resolved]
  - Deep vein thrombosis [Recovered/Resolved]
  - Thrombosis [None]

NARRATIVE: CASE EVENT DATE: 2011
